FAERS Safety Report 20488550 (Version 2)
Quarter: 2022Q1

REPORT INFORMATION
  Report Type: Spontaneous
  Country: US (occurrence: None)
  Receive Date: 20220218
  Receipt Date: 20220316
  Transmission Date: 20220423
  Serious: No
  Sender: FDA-Public Use
  Company Number: 2022A056756

PATIENT
  Age: 22600 Day
  Sex: Female
  Weight: 68 kg

DRUGS (1)
  1. BUDESONIDE\FORMOTEROL\GLYCOPYRRONIUM [Suspect]
     Active Substance: BUDESONIDE\FORMOTEROL\GLYCOPYRRONIUM
     Indication: Chronic obstructive pulmonary disease
     Dosage: 16MCG/9MCG/4.8MCG, 2 INHALATIONS TWICE DAILY
     Route: 055

REACTIONS (4)
  - Dyspnoea [Not Recovered/Not Resolved]
  - Device use issue [Unknown]
  - Wrong technique in device usage process [Unknown]
  - Device delivery system issue [Unknown]

NARRATIVE: CASE EVENT DATE: 20220131
